FAERS Safety Report 14282500 (Version 1)
Quarter: 2017Q4

REPORT INFORMATION
  Report Type: Spontaneous
  Country: US (occurrence: US)
  Receive Date: 20171213
  Receipt Date: 20171213
  Transmission Date: 20180321
  Serious: No
  Sender: FDA-Public Use
  Company Number: US-MALLINCKRODT-T201700990

PATIENT
  Age: 34 Year
  Sex: Female
  Weight: 104 kg

DRUGS (3)
  1. FENTANYL TRANSDERMAL SYSTEM [Suspect]
     Active Substance: FENTANYL
     Dosage: 25 MCG/HR, Q72HR
     Route: 062
     Dates: start: 201701, end: 20170227
  2. FENTANYL TRANSDERMAL SYSTEM [Suspect]
     Active Substance: FENTANYL
     Indication: PAIN
     Dosage: 25 MCG/HR, Q72HR
     Route: 062
     Dates: start: 201608, end: 201608
  3. FENTANYL TRANSDERMAL SYSTEM [Suspect]
     Active Substance: FENTANYL
     Dosage: 25 MCG/HR, Q72HR
     Route: 062
     Dates: start: 20170228, end: 20170311

REACTIONS (7)
  - Drug effect increased [Recovered/Resolved]
  - Application site haemorrhage [Unknown]
  - Rash papular [Unknown]
  - Abdominal discomfort [Unknown]
  - Product adhesion issue [Unknown]
  - Application site laceration [Unknown]
  - Pruritus [Unknown]

NARRATIVE: CASE EVENT DATE: 201608
